FAERS Safety Report 11873836 (Version 1)
Quarter: 2015Q4

REPORT INFORMATION
  Report Type: Spontaneous
  Country: US (occurrence: US)
  Receive Date: 20151229
  Receipt Date: 20151229
  Transmission Date: 20160305
  Serious: Yes (Hospitalization)
  Sender: FDA-Public Use
  Company Number: US-ROCHE-1606497

PATIENT
  Sex: Female
  Weight: 49.94 kg

DRUGS (1)
  1. ESBRIET [Suspect]
     Active Substance: PIRFENIDONE
     Indication: IDIOPATHIC PULMONARY FIBROSIS
     Dosage: 3 CAPSULES PO TID, EVERY 8 HOURS
     Route: 048
     Dates: start: 20150505

REACTIONS (5)
  - Nausea [Unknown]
  - Pneumonia [Unknown]
  - Diarrhoea [Unknown]
  - Rash [Recovering/Resolving]
  - Vomiting [Unknown]
